FAERS Safety Report 10085879 (Version 1)
Quarter: 2014Q2

REPORT INFORMATION
  Report Type: Spontaneous
  Country: DE (occurrence: None)
  Receive Date: 20140416
  Receipt Date: 20140416
  Transmission Date: 20141212
  Serious: Yes (Death, Other)
  Sender: FDA-Public Use
  Company Number: DE-20120001

PATIENT
  Age: 84 Year
  Sex: Male

DRUGS (2)
  1. GADOTERIC ACID [Suspect]
     Indication: ANGIOGRAM
     Dosage: 3 INJECTIONS
     Dates: start: 20090907, end: 20090907
  2. DIGITOXIN [Suspect]
     Indication: PRODUCT USED FOR UNKNOWN INDICATION

REACTIONS (6)
  - Candida sepsis [None]
  - Renal failure acute [None]
  - Cardiovascular insufficiency [None]
  - Acidosis [None]
  - Mitral valve incompetence [None]
  - Overdose [None]
